FAERS Safety Report 9397085 (Version 1)
Quarter: 2013Q3

REPORT INFORMATION
  Report Type: Spontaneous
  Country: US (occurrence: US)
  Receive Date: 20130712
  Receipt Date: 20130712
  Transmission Date: 20140515
  Serious: No
  Sender: FDA-Public Use
  Company Number: US-PFIZER INC-2013204222

PATIENT
  Age: 50 Year
  Sex: Female

DRUGS (5)
  1. CELEBREX [Suspect]
     Dosage: UNK
  2. CORTISPORIN [Suspect]
     Dosage: UNK
  3. CEFTIN [Suspect]
     Dosage: UNK
  4. CLARITIN-D [Suspect]
     Dosage: UNK
  5. BIAXIN [Suspect]
     Dosage: UNK

REACTIONS (1)
  - Drug hypersensitivity [Unknown]
